FAERS Safety Report 19912982 (Version 6)
Quarter: 2023Q4

REPORT INFORMATION
  Report Type: Spontaneous
  Country: US (occurrence: US)
  Receive Date: 20211004
  Receipt Date: 20231204
  Transmission Date: 20240110
  Serious: Yes (Other)
  Sender: FDA-Public Use
  Company Number: US-PFIZER INC-202101126630

PATIENT
  Age: 65 Year
  Sex: Male
  Weight: 119.7 kg

DRUGS (5)
  1. TIKOSYN [Suspect]
     Active Substance: DOFETILIDE
     Indication: Atrial fibrillation
     Dosage: 500 UG, 2X/DAY
     Route: 048
     Dates: start: 20210504
  2. TIKOSYN [Suspect]
     Active Substance: DOFETILIDE
     Dosage: 375 UG (125 UG, 3 CAPSULES), EVERY 12 HOURS
     Route: 048
  3. HYDRALAZINE [Concomitant]
     Active Substance: HYDRALAZINE HYDROCHLORIDE
     Dosage: UNK
  4. XARELTO [Concomitant]
     Active Substance: RIVAROXABAN
     Dosage: UNK
  5. NEURONTIN [Concomitant]
     Active Substance: GABAPENTIN
     Dosage: 600 MG, EVERY 4 HRS
     Route: 048
     Dates: start: 20201216

REACTIONS (1)
  - Ventricular tachycardia [Unknown]

NARRATIVE: CASE EVENT DATE: 20210504
